FAERS Safety Report 10200994 (Version 2)
Quarter: 2014Q3

REPORT INFORMATION
  Report Type: Spontaneous
  Country: US (occurrence: US)
  Receive Date: 20140528
  Receipt Date: 20140702
  Transmission Date: 20150326
  Serious: Yes (Death)
  Sender: FDA-Public Use
  Company Number: PHEH2014US010611

PATIENT
  Age: 65 Year
  Sex: Female

DRUGS (1)
  1. TASIGNA [Suspect]
     Active Substance: NILOTINIB
     Indication: CHRONIC MYELOID LEUKAEMIA

REACTIONS (3)
  - Thrombosis [Not Recovered/Not Resolved]
  - Cardiac arrest [Fatal]
  - Oedema peripheral [Not Recovered/Not Resolved]
